FAERS Safety Report 6096119-2 (Version None)
Quarter: 2009Q1

REPORT INFORMATION
  Report Type: 
  Country: None (occurrence: None)
  Receive Date: 20090227
  Receipt Date: 20080829
  Transmission Date: 20090719
  Serious: Yes (Other)
  Sender: FDA-Public Use
  Company Number: A0746232A

PATIENT
  Sex: Female

DRUGS (2)
  1. LAMICTAL [Suspect]
     Indication: BIPOLAR DISORDER
     Route: 048
  2. ABILIFY [Concomitant]
     Indication: BIPOLAR DISORDER

REACTIONS (4)
  - PHOTOSENSITIVITY REACTION [None]
  - PYREXIA [None]
  - RASH GENERALISED [None]
  - STEVENS-JOHNSON SYNDROME [None]
